FAERS Safety Report 8783486 (Version 1)
Quarter: 2012Q4

REPORT INFORMATION
  Report Type: 
  Country: US (occurrence: US)
  Receive Date: 20120913
  Receipt Date: 20120913
  Transmission Date: 20130627
  Serious: Yes (Other)
  Sender: FDA-Public Use
  Company Number: PHHY2012US078562

PATIENT
  Age: 59 Year
  Sex: Female

DRUGS (10)
  1. IMIPRAMINE [Suspect]
     Indication: DEPRESSION
     Dosage: 150 mg, QHS
  2. CITALOPRAM [Suspect]
     Indication: DEPRESSION
     Dosage: 40 mg/day
  3. LORAZEPAM [Suspect]
     Indication: DEPRESSION
     Dosage: 1 mg/day as needed, 2 mg/day at bedtime
  4. TRIFLUOPERAZINE [Suspect]
     Indication: DEPRESSION
     Dosage: 5 mg/day
  5. DIGOXIN [Concomitant]
     Dosage: 62.5 mcg/day
  6. FUROSEMIDE [Concomitant]
     Dosage: 240 mg/ day
  7. METFORMIN [Concomitant]
     Dosage: 1000 mg/ day
  8. MULTIVITAMINS [Concomitant]
     Dosage: 1 tablet/ day
  9. NIACIN [Concomitant]
     Dosage: 100 mg/ day
  10. POTASSIUM CHLORIDE [Concomitant]
     Dosage: 80 mEq/ day

REACTIONS (2)
  - Tachycardia [Unknown]
  - Pyrexia [Unknown]
